FAERS Safety Report 8291755-7 (Version None)
Quarter: 2012Q2

REPORT INFORMATION
  Report Type: 
  Country: None (occurrence: None)
  Receive Date: 20120417
  Receipt Date: 20110630
  Transmission Date: 20120825
  Serious: No
  Sender: FDA-Public Use
  Company Number: US-ASTRAZENECA-2011SE39399

PATIENT
  Age: 67 Year
  Sex: Female
  Weight: 54.4 kg

DRUGS (7)
  1. HYDROCODONE [Concomitant]
  2. COUMADIN [Interacting]
     Route: 065
  3. NEXIUM [Suspect]
     Indication: ULCER
     Route: 048
     Dates: start: 20110629
  4. FENTANYL-100 [Concomitant]
  5. ALPRAZOLAM [Concomitant]
  6. CYMBALTA [Interacting]
     Indication: DEPRESSION
     Route: 065
  7. TRAZODONE HCL [Concomitant]
     Indication: SLEEP DISORDER

REACTIONS (5)
  - DRUG INTERACTION [None]
  - ANXIETY [None]
  - MALAISE [None]
  - FEELING JITTERY [None]
  - DEPRESSION [None]
